FAERS Safety Report 9101370 (Version 1)
Quarter: 2013Q1

REPORT INFORMATION
  Report Type: Spontaneous
  Country: US (occurrence: US)
  Receive Date: 20130218
  Receipt Date: 20130218
  Transmission Date: 20140127
  Serious: No
  Sender: FDA-Public Use
  Company Number: US-ABBOTT-12P-163-0981708-00

PATIENT
  Age: 53 Year
  Sex: Male
  Weight: 86.26 kg

DRUGS (3)
  1. SIMCOR 500/20 [Suspect]
     Indication: BLOOD CHOLESTEROL INCREASED
     Dates: start: 20090821
  2. PREVACID [Concomitant]
     Indication: GASTROOESOPHAGEAL REFLUX DISEASE
  3. AMBIEN [Concomitant]
     Indication: SLEEP DISORDER
     Dates: start: 20090821

REACTIONS (6)
  - Hot flush [Unknown]
  - Hot flush [Unknown]
  - Hot flush [Unknown]
  - Hot flush [Unknown]
  - Hot flush [Unknown]
  - Hot flush [Unknown]
